FAERS Safety Report 5377250-3 (Version None)
Quarter: 2007Q3

REPORT INFORMATION
  Report Type: 
  Country: None (occurrence: None)
  Receive Date: 20070703
  Receipt Date: 20070621
  Transmission Date: 20080115
  Serious: Yes (Hospitalization)
  Sender: FDA-Public Use
  Company Number: US-ELI_LILLY_AND_COMPANY-US200603001874

PATIENT
  Age: 65 Year
  Sex: Female
  Weight: 64.399 kg

DRUGS (12)
  1. ATENOLOL [Concomitant]
  2. REGLAN [Concomitant]
  3. LEVSIN [Concomitant]
  4. XANAX [Concomitant]
  5. PAXIL [Concomitant]
  6. NEXIUM [Concomitant]
  7. PLAVIX [Concomitant]
  8. DYAZIDE [Concomitant]
  9. DARVOCET [Concomitant]
  10. FORTEO [Suspect]
     Indication: OSTEOPOROSIS
     Dosage: 20 UG, UNK
     Dates: start: 20040811, end: 20051001
  11. FORTEO [Suspect]
     Dosage: 20 UG, UNK
     Dates: start: 20060220, end: 20060201
  12. FORTEO [Suspect]
     Dosage: 20 UG, UNK
     Dates: start: 20060101, end: 20060307

REACTIONS (7)
  - ARTHRITIS [None]
  - BACK PAIN [None]
  - IMMUNE SYSTEM DISORDER [None]
  - INJECTION SITE ERYTHEMA [None]
  - LYMPHADENOPATHY [None]
  - NERVOUSNESS [None]
  - PAIN [None]
